FAERS Safety Report 8319707-9 (Version None)
Quarter: 2012Q2

REPORT INFORMATION
  Report Type: 
  Country: None (occurrence: None)
  Receive Date: 20120427
  Receipt Date: 20120418
  Transmission Date: 20120825
  Serious: Yes (Other)
  Sender: FDA-Public Use
  Company Number: US-ELI_LILLY_AND_COMPANY-US201204006654

PATIENT
  Sex: Female
  Weight: 81.633 kg

DRUGS (8)
  1. BYETTA [Suspect]
     Dosage: 10 UG, BID
     Route: 058
     Dates: start: 20120418
  2. ACTOS [Concomitant]
     Indication: TYPE 2 DIABETES MELLITUS
     Dosage: 30 MG, QD
     Route: 048
  3. LIPITOR [Concomitant]
     Indication: BLOOD CHOLESTEROL INCREASED
     Dosage: 40 MG, QD
     Route: 048
  4. BUPROPION HCL [Concomitant]
     Indication: DEPRESSION
     Dosage: 150 MG, QD
     Route: 048
  5. VITAMIN B COMPLEX CAP [Concomitant]
     Indication: NEUROPATHY PERIPHERAL
     Dosage: UNK, QD
     Route: 048
  6. METFORMIN HCL [Concomitant]
     Indication: TYPE 2 DIABETES MELLITUS
     Dosage: 2000 MG, EACH EVENING
     Route: 048
  7. NITROSTAT [Concomitant]
     Indication: CARDIAC DISORDER
     Dosage: UNK, PRN
     Route: 060
  8. BYETTA [Suspect]
     Indication: TYPE 2 DIABETES MELLITUS
     Dosage: 10 UG, BID
     Route: 058
     Dates: start: 20050101, end: 20120417

REACTIONS (12)
  - THYROID NEOPLASM [None]
  - HEADACHE [None]
  - SPEECH DISORDER [None]
  - CONFUSIONAL STATE [None]
  - EXPOSURE TO CONTAMINATED AIR [None]
  - ASTHENIA [None]
  - FALL [None]
  - BREAST CANCER [None]
  - BLOOD PRESSURE INCREASED [None]
  - CONTUSION [None]
  - BLOOD GLUCOSE DECREASED [None]
  - DIZZINESS [None]
